FAERS Safety Report 7861565-0 (Version None)
Quarter: 2011Q4

REPORT INFORMATION
  Report Type: 
  Country: None (occurrence: None)
  Receive Date: 20111027
  Receipt Date: 20111019
  Transmission Date: 20120403
  Serious: Yes (Life-Threatening)
  Sender: FDA-Public Use
  Company Number: CH-JNJFOC-20111010612

PATIENT
  Sex: Female
  Weight: 67 kg

DRUGS (7)
  1. IRBESARTAN [Concomitant]
  2. TIMOPTIC [Concomitant]
  3. DUOFER [Concomitant]
  4. CYCLACUR [Concomitant]
  5. DAFLON [Concomitant]
  6. XARELTO [Suspect]
     Indication: ILL-DEFINED DISORDER
     Route: 048
     Dates: start: 20101014, end: 20101102
  7. PANTOPRAZOLE [Concomitant]

REACTIONS (1)
  - THROMBOCYTOSIS [None]
